FAERS Safety Report 8785683 (Version 1)
Quarter: 2012Q4

REPORT INFORMATION
  Report Type: Report from Study
  Country: FR (occurrence: FR)
  Receive Date: 20120914
  Receipt Date: 20120914
  Transmission Date: 20130627
  Serious: Yes (Hospitalization)
  Sender: FDA-Public Use
  Company Number: FR-AMGEN-FRACT2012058039

PATIENT
  Age: 71 Year
  Sex: Male

DRUGS (7)
  1. PANITUMUMAB [Suspect]
     Indication: ANAL CANCER
     Dosage: 3 mg/kg, UNK
     Dates: start: 20120717
  2. 5 FU [Concomitant]
     Indication: ANAL CANCER
     Dosage: 600 mg/m2, UNK
     Dates: start: 20120717
  3. MITOMYCIN [Concomitant]
     Indication: ANAL CANCER
     Dosage: 10 mg/m2, UNK
     Dates: start: 20120717
  4. DOXYCYCLINE [Concomitant]
     Indication: RASH
     Dosage: 100 mg, UNK
     Dates: start: 20120717
  5. DUPHALAC [Concomitant]
     Indication: CONSTIPATION PROPHYLAXIS
     Dosage: 10 g, UNK
     Dates: start: 20120717
  6. TOPALGIC [Concomitant]
     Indication: PAIN
     Dosage: 200 mg, UNK
     Dates: start: 20120717
  7. LOVENOX [Concomitant]
     Indication: PROPHYLAXIS
     Dosage: 4000 IU, UNK
     Dates: start: 20120717

REACTIONS (1)
  - Hospitalisation [Unknown]
